FAERS Safety Report 8478145-9 (Version None)
Quarter: 2012Q2

REPORT INFORMATION
  Report Type: 
  Country: None (occurrence: None)
  Receive Date: 20120629
  Receipt Date: 20120627
  Transmission Date: 20120825
  Serious: Yes (Other)
  Sender: FDA-Public Use
  Company Number: PHEH2012US004546

PATIENT
  Sex: Male
  Weight: 87.075 kg

DRUGS (2)
  1. OXYBUTYNIN [Concomitant]
     Indication: BLADDER DYSFUNCTION
     Dosage: 5 MG, TID
     Route: 048
  2. GILENYA [Suspect]
     Indication: RELAPSING-REMITTING MULTIPLE SCLEROSIS
     Dosage: 0.5 MG, QD
     Route: 048
     Dates: start: 20111013, end: 20120322

REACTIONS (3)
  - CD4 LYMPHOCYTES DECREASED [None]
  - SKIN LESION [None]
  - PERIVASCULAR DERMATITIS [None]
